FAERS Safety Report 7604574-9 (Version None)
Quarter: 2011Q3

REPORT INFORMATION
  Report Type: 
  Country: None (occurrence: None)
  Receive Date: 20110712
  Receipt Date: 20110707
  Transmission Date: 20111222
  Serious: Yes (Hospitalization, Other)
  Sender: FDA-Public Use
  Company Number: US-PFIZER INC-2011064285

PATIENT
  Sex: Female

DRUGS (17)
  1. NAPROXEN (ALEVE) [Concomitant]
     Indication: ANALGESIC THERAPY
     Dosage: UNK,
     Dates: start: 20060101, end: 20100101
  2. CHANTIX [Suspect]
     Indication: SMOKING CESSATION THERAPY
     Dosage: STARTER PACK AND MULTIPLE CONTINUING PACKS
     Dates: start: 20090604, end: 20100401
  3. ALPRAZOLAM [Concomitant]
     Indication: ANXIETY
     Dosage: UNK,
     Dates: start: 20060101, end: 20100101
  4. ATROVENT [Concomitant]
     Indication: CHRONIC OBSTRUCTIVE PULMONARY DISEASE
     Dosage: UNK,
     Dates: start: 20080101, end: 20100101
  5. SENNA [Concomitant]
     Indication: CONSTIPATION
     Dosage: UNK,
     Dates: start: 20070101, end: 20100101
  6. TRAZODONE [Concomitant]
     Indication: DEPRESSION
     Dosage: UNK,
     Dates: start: 20060101
  7. SEROQUEL [Concomitant]
     Indication: DEPRESSION
     Dosage: UNK,
     Dates: start: 20060101, end: 20100101
  8. POLYETHYLENE GLYCOL [Concomitant]
     Indication: CONSTIPATION
     Dosage: UNK,
     Dates: start: 20070101
  9. PRILOSEC [Concomitant]
     Indication: GASTROOESOPHAGEAL REFLUX DISEASE
     Dosage: UNK
     Dates: start: 20080101, end: 20100101
  10. GEODON [Concomitant]
     Indication: BIPOLAR DISORDER
     Dosage: UNK,
     Dates: start: 20080101, end: 20100101
  11. ACETAMINOPHEN AND HYDROCODONE BITARTRATE [Concomitant]
     Indication: ANALGESIC THERAPY
     Dosage: UNK,
     Dates: start: 20070101, end: 20100101
  12. OXYCODONE [Concomitant]
     Indication: ANALGESIC THERAPY
     Dosage: UNK,
     Dates: start: 20070101, end: 20100101
  13. OXYCODONE HCL AND ACETAMINOPHEN [Concomitant]
     Indication: ANALGESIC THERAPY
     Dosage: UNK,
     Dates: start: 20070101, end: 20100101
  14. SOMA [Concomitant]
     Indication: MUSCLE RELAXANT THERAPY
     Dosage: UNK,
     Dates: start: 20060101, end: 20100101
  15. PROZAC [Concomitant]
     Indication: DEPRESSION
     Dosage: UNK,
     Dates: start: 20070101
  16. REQUIP [Concomitant]
     Indication: RESTLESS LEGS SYNDROME
     Dosage: UNK,
     Dates: start: 20070101
  17. DICYCLOMINE [Concomitant]
     Indication: MUSCLE SPASMS
     Dosage: UNK,
     Dates: start: 20070101, end: 20100101

REACTIONS (9)
  - LOSS OF CONSCIOUSNESS [None]
  - INTENTIONAL OVERDOSE [None]
  - HALLUCINATION, VISUAL [None]
  - BIPOLAR DISORDER [None]
  - DEPRESSION [None]
  - INJURY [None]
  - SUICIDE ATTEMPT [None]
  - ROAD TRAFFIC ACCIDENT [None]
  - ANXIETY [None]
